FAERS Safety Report 4683213-3 (Version None)
Quarter: 2005Q2

REPORT INFORMATION
  Report Type: 
  Country: None (occurrence: None)
  Receive Date: 20050602
  Receipt Date: 20050131
  Transmission Date: 20051028
  Serious: No
  Sender: FDA-Public Use
  Company Number: USA050189516

PATIENT
  Age: 39 Year
  Sex: Female
  Weight: 61 kg

DRUGS (4)
  1. CYMBALTA [Suspect]
     Indication: DEPRESSION
     Dosage: 30 MG DAY
  2. WELLBUTRIN SR [Concomitant]
  3. SYNTHROID [Concomitant]
  4. METFORMIN [Concomitant]

REACTIONS (4)
  - INSOMNIA [None]
  - MUSCLE TWITCHING [None]
  - POLLAKIURIA [None]
  - RESTLESS LEGS SYNDROME [None]
